FAERS Safety Report 12409557 (Version 1)
Quarter: 2016Q2

REPORT INFORMATION
  Report Type: Report from Study
  Country: US (occurrence: US)
  Receive Date: 20160526
  Receipt Date: 20160526
  Transmission Date: 20160815
  Serious: Yes (Other)
  Sender: FDA-Public Use
  Company Number: US-ABBVIE-16P-163-1636267-00

PATIENT
  Age: 31 Year
  Sex: Female

DRUGS (5)
  1. ACYCLOVIR. [Concomitant]
     Active Substance: ACYCLOVIR
     Indication: ORAL HERPES
     Dosage: X 5 DAYS AS NEEDED
     Route: 065
  2. LUPRON DEPOT [Suspect]
     Active Substance: LEUPROLIDE ACETATE
     Indication: ENDOMETRIOSIS
     Dosage: X 6 MONTHS
     Route: 050
     Dates: start: 2004
  3. IBUPROFEN. [Suspect]
     Active Substance: IBUPROFEN
     Indication: PRODUCT USED FOR UNKNOWN INDICATION
     Route: 065
  4. NICODERM CQ [Concomitant]
     Active Substance: NICOTINE
     Indication: EX-TOBACCO USER
     Dosage: 24 HR PATCH, CHANGE PATCH DAILY
     Route: 062
     Dates: start: 20160522
  5. LUPRON DEPOT [Suspect]
     Active Substance: LEUPROLIDE ACETATE
     Route: 050
     Dates: start: 20160518

REACTIONS (18)
  - Abdominal pain upper [Not Recovered/Not Resolved]
  - Hot flush [Not Recovered/Not Resolved]
  - Road traffic accident [Recovering/Resolving]
  - Menstrual disorder [Not Recovered/Not Resolved]
  - Endometriosis [Recovered/Resolved]
  - Tachycardia [Recovering/Resolving]
  - Drug ineffective [Recovered/Resolved]
  - Neck injury [Recovering/Resolving]
  - Exposure during pregnancy [Unknown]
  - Osteoporosis [Not Recovered/Not Resolved]
  - Intervertebral disc protrusion [Unknown]
  - Ovarian cyst [Recovered/Resolved]
  - Ovarian cyst [Recovered/Resolved]
  - Abdominal discomfort [Unknown]
  - Endometriosis [Recovered/Resolved]
  - Back injury [Recovering/Resolving]
  - Mood swings [Not Recovered/Not Resolved]
  - Diarrhoea [Unknown]

NARRATIVE: CASE EVENT DATE: 2004
